FAERS Safety Report 5881124-9 (Version None)
Quarter: 2008Q3

REPORT INFORMATION
  Report Type: 
  Country: None (occurrence: None)
  Receive Date: 20080912
  Receipt Date: 20080606
  Transmission Date: 20090109
  Serious: No
  Sender: FDA-Public Use
  Company Number: US-ABBOTT-08P-163-0458658-00

PATIENT
  Sex: Female
  Weight: 61.29 kg

DRUGS (3)
  1. HUMIRA [Suspect]
     Indication: CROHN'S DISEASE
     Route: 058
     Dates: start: 20071101, end: 20080507
  2. MESALAMINE [Concomitant]
     Indication: CROHN'S DISEASE
     Route: 048
  3. PREDNISONE TAB [Concomitant]
     Indication: GASTROINTESTINAL HAEMORRHAGE
     Dosage: 2 TABS IN AM, 2 TABS IN PM
     Route: 048

REACTIONS (4)
  - ABDOMINAL DISCOMFORT [None]
  - COMPUTERISED TOMOGRAM ABDOMEN ABNORMAL [None]
  - CROHN'S DISEASE [None]
  - DRUG INEFFECTIVE [None]
